FAERS Safety Report 5748555-9 (Version None)
Quarter: 2008Q2

REPORT INFORMATION
  Report Type: 
  Country: None (occurrence: None)
  Receive Date: 20080523
  Receipt Date: 20080512
  Transmission Date: 20081010
  Serious: Yes (Other)
  Sender: FDA-Public Use
  Company Number: US-PFIZER INC-2008042162

PATIENT
  Age: 53 Year
  Sex: Female

DRUGS (1)
  1. LYRICA [Suspect]
     Indication: ARTHROPATHY

REACTIONS (3)
  - ARTHRALGIA [None]
  - DRY SKIN [None]
  - KNEE OPERATION [None]
